FAERS Safety Report 11760553 (Version 1)
Quarter: 2015Q4

REPORT INFORMATION
  Report Type: Spontaneous
  Country: US (occurrence: US)
  Receive Date: 20151120
  Receipt Date: 20151120
  Transmission Date: 20160304
  Serious: No
  Sender: FDA-Public Use
  Company Number: US-ELI_LILLY_AND_COMPANY-US201211006430

PATIENT
  Sex: Female

DRUGS (1)
  1. FORTEO [Suspect]
     Active Substance: TERIPARATIDE
     Indication: OSTEOPOROSIS
     Dosage: 20 UG, QD
     Dates: start: 2012, end: 201210

REACTIONS (7)
  - Jaw disorder [Unknown]
  - Swelling face [Unknown]
  - Asthenia [Unknown]
  - Blood calcium increased [Unknown]
  - Pain in extremity [Unknown]
  - Rash [Unknown]
  - Weight decreased [Unknown]
